FAERS Safety Report 9417722 (Version 1)
Quarter: 2013Q3

REPORT INFORMATION
  Report Type: Spontaneous
  Country: CN (occurrence: None)
  Receive Date: 20130719
  Receipt Date: 20130719
  Transmission Date: 20140515
  Serious: Yes (Other)
  Sender: FDA-Public Use
  Company Number: SYM-2013-06887

PATIENT
  Sex: 0

DRUGS (2)
  1. FLUOROURACIL [Suspect]
     Indication: HEPATOCELLULAR CARCINOMA
     Route: 013
  2. CISPLATIN [Suspect]
     Indication: HEPATOCELLULAR CARCINOMA
     Route: 013

REACTIONS (2)
  - Gastric varices haemorrhage [None]
  - Oesophageal varices haemorrhage [None]
